FAERS Safety Report 17934339 (Version 1)
Quarter: 2020Q2

REPORT INFORMATION
  Report Type: Report from Study
  Country: US (occurrence: US)
  Receive Date: 20200624
  Receipt Date: 20200624
  Transmission Date: 20200714
  Serious: Yes (Hospitalization, Other)
  Sender: FDA-Public Use
  Company Number: US-ASTELLAS-2020US020689

PATIENT
  Age: 78 Year
  Sex: Male

DRUGS (1)
  1. ENZALUTAMIDE [Suspect]
     Active Substance: ENZALUTAMIDE
     Indication: PROSTATE CANCER
     Route: 048
     Dates: start: 202001

REACTIONS (4)
  - Localised infection [Unknown]
  - Urinary tract infection [Unknown]
  - Cardiac flutter [Unknown]
  - Underdose [Unknown]

NARRATIVE: CASE EVENT DATE: 202001
